FAERS Safety Report 9703929 (Version 1)
Quarter: 2013Q4

REPORT INFORMATION
  Report Type: Spontaneous
  Country: US (occurrence: None)
  Receive Date: 20131121
  Receipt Date: 20131121
  Transmission Date: 20140711
  Serious: No
  Sender: FDA-Public Use
  Company Number: None

PATIENT
  Age: 74 Year
  Sex: Male
  Weight: 119.2 kg

DRUGS (1)
  1. DEXTROSE/HEPARIN [Suspect]
     Indication: CARDIOVASCULAR DISORDER
     Dates: start: 20131031, end: 20131115

REACTIONS (3)
  - Thrombocytopenia [None]
  - Pulmonary embolism [None]
  - Haemorrhage [None]
